FAERS Safety Report 4511345-9 (Version None)
Quarter: 2004Q4

REPORT INFORMATION
  Report Type: 
  Country: None (occurrence: None)
  Receive Date: 20041122
  Receipt Date: 20041104
  Transmission Date: 20050328
  Serious: Yes (Disabling)
  Sender: FDA-Public Use
  Company Number: DSA_25360_2004

PATIENT
  Sex: Male

DRUGS (1)
  1. ENALAPRIL MALEATE AND HYDROCHLOROTHIAZIDE [Suspect]
     Indication: HYPERTENSION
     Dosage: DF PO
     Route: 048
     Dates: start: 20020101

REACTIONS (2)
  - COORDINATION ABNORMAL [None]
  - GUILLAIN-BARRE SYNDROME [None]
